FAERS Safety Report 9515548 (Version 2)
Quarter: 2013Q3

REPORT INFORMATION
  Report Type: Report from Study
  Country: BR (occurrence: BR)
  Receive Date: 20130911
  Receipt Date: 20130926
  Transmission Date: 20140515
  Serious: Yes (Other)
  Sender: FDA-Public Use
  Company Number: PHHY2013BR099642

PATIENT
  Sex: Female
  Weight: 56 kg

DRUGS (7)
  1. ACLASTA [Suspect]
     Indication: OSTEOPOROSIS
     Dosage: 5 MG, UNK
     Route: 042
     Dates: start: 2012
  2. AMLODIPINE [Concomitant]
     Dosage: UNK UKN, UNK
     Dates: start: 2008
  3. LOSARTAN [Concomitant]
     Dosage: UNK UKN, UNK
     Dates: start: 2008
  4. CHLORTHALIDONE [Concomitant]
     Dosage: UNK UKN, UNK
     Dates: start: 2008
  5. SIMVASTATIN [Concomitant]
     Dosage: UNK UKN, UNK
     Dates: start: 2010
  6. PURAN T4 [Concomitant]
     Dosage: UNK UKN, UNK
     Dates: start: 1998
  7. ANTIINFLAMMATORY AGENTS [Concomitant]
     Dosage: UNK UKN, UNK

REACTIONS (2)
  - Coronary artery thrombosis [Recovering/Resolving]
  - Asthenia [Recovering/Resolving]
